FAERS Safety Report 10301657 (Version 1)
Quarter: 2014Q3

REPORT INFORMATION
  Report Type: Spontaneous
  Country: US (occurrence: None)
  Receive Date: 20140709
  Receipt Date: 20140709
  Transmission Date: 20150326
  Serious: Yes (Other)
  Sender: FDA-Public Use
  Company Number: None

PATIENT
  Age: 44 Year
  Sex: Male
  Weight: 104.33 kg

DRUGS (2)
  1. FENTANYL. [Suspect]
     Active Substance: FENTANYL
     Indication: NECK PAIN
     Dosage: ONE PATCH, EVERY 72 HOURS, APPLIED AS MEDICATED PATCH TO SKIN?
     Dates: start: 20140702, end: 20140707
  2. FENTANYL. [Suspect]
     Active Substance: FENTANYL
     Indication: BACK PAIN
     Dosage: ONE PATCH, EVERY 72 HOURS, APPLIED AS MEDICATED PATCH TO SKIN?
     Dates: start: 20140702, end: 20140707

REACTIONS (5)
  - Drug withdrawal syndrome [None]
  - Product adhesion issue [None]
  - Product quality issue [None]
  - Product physical issue [None]
  - Drug effect decreased [None]

NARRATIVE: CASE EVENT DATE: 20140707
